FAERS Safety Report 8871002 (Version 1)
Quarter: 2012Q4

REPORT INFORMATION
  Report Type: Spontaneous
  Country: US (occurrence: None)
  Receive Date: 20121031
  Receipt Date: 20121031
  Transmission Date: 20130627
  Serious: Yes (Life-Threatening, Hospitalization, Disabling, Other)
  Sender: FDA-Public Use
  Company Number: None

PATIENT
  Sex: Female
  Weight: 77.11 kg

DRUGS (1)
  1. METHYLPREDNISOLONE [Suspect]
     Indication: MS
     Dosage: minimal 1 time IV
     Route: 042
     Dates: start: 20120823

REACTIONS (12)
  - Dyspnoea [None]
  - Pharyngeal oedema [None]
  - Hypoaesthesia [None]
  - Abasia [None]
  - Feeding disorder [None]
  - Dizziness [None]
  - Pyrexia [None]
  - Nausea [None]
  - Musculoskeletal stiffness [None]
  - Confusional state [None]
  - Photophobia [None]
  - Bedridden [None]
